FAERS Safety Report 17189550 (Version 1)
Quarter: 2019Q4

REPORT INFORMATION
  Report Type: Spontaneous
  Country: IT (occurrence: IT)
  Receive Date: 20191223
  Receipt Date: 20191223
  Transmission Date: 20200122
  Serious: Yes (Hospitalization, Other)
  Sender: FDA-Public Use
  Company Number: IT-AUROBINDO-AUR-APL-2019-106336

PATIENT
  Age: 74 Year
  Sex: Female

DRUGS (5)
  1. CARVEDILOL. [Concomitant]
     Active Substance: CARVEDILOL
     Indication: PRODUCT USED FOR UNKNOWN INDICATION
     Dosage: 2.5 MILLIGRAM
     Route: 048
  2. QUETIAPINE. [Suspect]
     Active Substance: QUETIAPINE
     Indication: DEPRESSION
     Dosage: 150 MILLIGRAM, ONCE A DAY
     Route: 048
     Dates: start: 20190101
  3. HALDOL [Suspect]
     Active Substance: HALOPERIDOL
     Indication: SCHIZOAFFECTIVE DISORDER
     Dosage: 20 GTT DROPS, ONCE A DAY
     Route: 048
     Dates: start: 20190101
  4. ENOXAPARINA ROVI [Concomitant]
     Active Substance: ENOXAPARIN SODIUM
     Indication: PRODUCT USED FOR UNKNOWN INDICATION
     Dosage: 1 DOSAGE FORM
     Route: 058
  5. SERTRALINE [Suspect]
     Active Substance: SERTRALINE HYDROCHLORIDE
     Indication: DEPRESSION
     Dosage: 50 MILLIGRAM, ONCE A DAY
     Route: 048
     Dates: start: 20190101

REACTIONS (1)
  - Loss of consciousness [Recovering/Resolving]

NARRATIVE: CASE EVENT DATE: 20191123
